FAERS Safety Report 7419012-9 (Version None)
Quarter: 2011Q2

REPORT INFORMATION
  Report Type: 
  Country: None (occurrence: None)
  Receive Date: 20110415
  Receipt Date: 20110406
  Transmission Date: 20111010
  Serious: Yes (Other)
  Sender: FDA-Public Use
  Company Number: US-JNJFOC-20110402923

PATIENT
  Age: 76 Year
  Sex: Female
  Weight: 54.43 kg

DRUGS (5)
  1. VISINE EYE DROPS [Suspect]
     Indication: EYE DISORDER
     Dosage: ONE DROP PER EYE ONCE
     Route: 047
  2. COUMADIN [Concomitant]
     Indication: ANTICOAGULANT THERAPY
     Route: 050
  3. VISINE EYE DROPS [Suspect]
     Indication: DRY EYE
     Dosage: ONE DROP PER EYE ONCE
     Route: 047
  4. BYSTOLIC [Concomitant]
     Indication: HYPERTENSION
     Route: 050
  5. DIGOXIN [Concomitant]
     Indication: ARRHYTHMIA
     Route: 050

REACTIONS (1)
  - ANGLE CLOSURE GLAUCOMA [None]
